FAERS Safety Report 25070482 (Version 3)
Quarter: 2025Q2

REPORT INFORMATION
  Report Type: Spontaneous
  Country: US (occurrence: US)
  Receive Date: 20250312
  Receipt Date: 20250422
  Transmission Date: 20250716
  Serious: No
  Sender: PFIZER
  Company Number: US-PFIZER INC-202500052361

PATIENT
  Age: 48 Year
  Sex: Female
  Weight: 53.52 kg

DRUGS (4)
  1. GENOTROPIN [Suspect]
     Active Substance: SOMATROPIN
     Indication: Hypopituitarism
  2. TROKENDI XR [Concomitant]
     Active Substance: TOPIRAMATE
     Indication: Seizure
     Dosage: 400 MG, DAILY
  3. LEVOTHYROXINE [Concomitant]
     Active Substance: LEVOTHYROXINE
  4. LIOTHYRONINE [Concomitant]
     Active Substance: LIOTHYRONINE
     Indication: Hypothyroidism

REACTIONS (2)
  - Drug dose omission by device [Unknown]
  - Device material issue [Unknown]

NARRATIVE: CASE EVENT DATE: 20250307
